FAERS Safety Report 7520913-1 (Version None)
Quarter: 2011Q2

REPORT INFORMATION
  Report Type: 
  Country: None (occurrence: None)
  Receive Date: 20110603
  Receipt Date: 20101124
  Transmission Date: 20111010
  Serious: Yes (Death, Hospitalization)
  Sender: FDA-Public Use
  Company Number: NL-BAYER-201047270GPV

PATIENT
  Age: 50 Year
  Sex: Female

DRUGS (6)
  1. GABAPENTIN [Concomitant]
  2. LORAZEPAM [Concomitant]
  3. SYMORON [Concomitant]
  4. SORAFENIB (RAF KINASE INHIBITOR) [Suspect]
     Indication: NON-SMALL CELL LUNG CANCER
     Dosage: 800 MG (DAILY DOSE), QD, ORAL
     Route: 048
     Dates: start: 20100929, end: 20101008
  5. ACTIQ [Concomitant]
     Dosage: 1-6 TIMES 800
  6. DICLOFENAC SODIUM [Suspect]
     Indication: NON-SMALL CELL LUNG CANCER

REACTIONS (7)
  - PAIN [None]
  - MALAISE [None]
  - DECREASED APPETITE [None]
  - HYPERKALAEMIA [None]
  - FATIGUE [None]
  - HYPONATRAEMIA [None]
  - NON-SMALL CELL LUNG CANCER [None]
